FAERS Safety Report 22270286 (Version 1)
Quarter: 2023Q2

REPORT INFORMATION
  Report Type: Spontaneous
  Country: US (occurrence: US)
  Receive Date: 20230501
  Receipt Date: 20230501
  Transmission Date: 20230722
  Serious: No
  Sender: FDA-Public Use
  Company Number: US-PFIZER INC-PV202300005662

PATIENT
  Age: 90 Year
  Sex: Female

DRUGS (1)
  1. RETACRIT [Suspect]
     Active Substance: EPOETIN ALFA-EPBX
     Indication: Haemoglobin decreased
     Dosage: 40000 IU, WEEKLY (1 ML UNDER THE SKIN ONCE A WEEK)
     Route: 058

REACTIONS (2)
  - Bedridden [Unknown]
  - Off label use [Unknown]
